FAERS Safety Report 8209272-9 (Version None)
Quarter: 2012Q1

REPORT INFORMATION
  Report Type: 
  Country: None (occurrence: None)
  Receive Date: 20120314
  Receipt Date: 20120305
  Transmission Date: 20120608
  Serious: Yes (Hospitalization, Other)
  Sender: FDA-Public Use
  Company Number: US-BAYER-2012-022887

PATIENT
  Age: 47 Year
  Sex: Female
  Weight: 63.039 kg

DRUGS (13)
  1. DROSPIRENONE AND ETHINYL ESTRADIOL [Suspect]
     Dosage: UNK
     Dates: end: 20110201
  2. LASIX [Concomitant]
     Indication: OEDEMA PERIPHERAL
     Dosage: 40 MG, QD
     Dates: start: 20110129
  3. VENTOLIN [Concomitant]
     Dosage: UNK UNK, PRN
     Dates: start: 20110209
  4. PREVACID [Concomitant]
     Indication: THROMBOSIS PROPHYLAXIS
  5. TRAMADOL HCL [Concomitant]
     Dosage: 50 MG, PRN
     Dates: start: 20110129
  6. LORATADINE [Concomitant]
     Dosage: 10 MG, QD
     Dates: start: 20110129
  7. SINGULAIR [Concomitant]
     Dosage: 10 MG, HS
     Dates: start: 20110129
  8. HYDROXYZINE [Concomitant]
     Indication: ANXIETY
     Dosage: 25 MG, PRN
     Dates: start: 20110209
  9. PREVACID [Concomitant]
     Indication: GASTROOESOPHAGEAL REFLUX DISEASE
     Dosage: 30 MG, BID
     Dates: start: 20110129
  10. TRAMADOL HCL [Concomitant]
     Indication: PAIN
     Dosage: 50 MG, BID
     Dates: start: 20110129
  11. YASMIN [Suspect]
     Dosage: UNK
     Dates: start: 20051201, end: 20110201
  12. POTASSIUM CHLORIDE [Concomitant]
     Dosage: 20 MEQ, BID
     Dates: start: 20110129
  13. CIPROFLOXACIN [Concomitant]
     Indication: URINARY TRACT INFECTION

REACTIONS (7)
  - PAIN [None]
  - CHOLECYSTITIS CHRONIC [None]
  - GENERAL PHYSICAL HEALTH DETERIORATION [None]
  - GALLBLADDER DISORDER [None]
  - ANXIETY [None]
  - EMOTIONAL DISTRESS [None]
  - DEEP VEIN THROMBOSIS [None]
